FAERS Safety Report 4341394-5 (Version None)
Quarter: 2004Q2

REPORT INFORMATION
  Report Type: 
  Country: None (occurrence: None)
  Receive Date: 20040413
  Receipt Date: 20040329
  Transmission Date: 20050107
  Serious: Yes (Hospitalization)
  Sender: FDA-Public Use
  Company Number: DSK-2004-01696

PATIENT
  Age: 8 Year
  Sex: Male

DRUGS (4)
  1. TARIVID OTIC SOLUTION [Suspect]
     Indication: EAR INFECTION
     Route: 001
     Dates: start: 20040205, end: 20040208
  2. TARIVID OTIC SOLUTION [Suspect]
     Indication: TYMPANIC MEMBRANE PERFORATION
     Route: 001
     Dates: start: 20040205, end: 20040208
  3. ORELOX(CEFPODOXIME PROXETIL)(CEFPODOXIME PROXETIL) [Suspect]
     Dates: start: 20040208, end: 20040216
  4. AUGMENTIN(CLAVULIN)(CLAVULANATE POTASSIUN, AMOXICILLIN TRIHYDRATE) [Concomitant]

REACTIONS (16)
  - ANOREXIA [None]
  - BALANCE DISORDER [None]
  - C-REACTIVE PROTEIN INCREASED [None]
  - DIARRHOEA [None]
  - DIPLOPIA [None]
  - FOOD INTOLERANCE [None]
  - GASTROINTESTINAL DISORDER [None]
  - HEADACHE [None]
  - INTRACRANIAL PRESSURE INCREASED [None]
  - MONOCYTE PERCENTAGE INCREASED [None]
  - PARAESTHESIA [None]
  - RETINAL OEDEMA [None]
  - RETINITIS [None]
  - VISUAL FIELD DEFECT [None]
  - VITH NERVE PARALYSIS [None]
  - VOMITING [None]
